FAERS Safety Report 9720596 (Version 2)
Quarter: 2014Q1

REPORT INFORMATION
  Report Type: Report from Study
  Country: US (occurrence: US)
  Receive Date: 20131129
  Receipt Date: 20140127
  Transmission Date: 20141002
  Serious: Yes (Hospitalization)
  Sender: FDA-Public Use
  Company Number: PHEH2013US024417

PATIENT
  Sex: Male

DRUGS (1)
  1. GLEEVEC [Suspect]
     Indication: GASTROINTESTINAL STROMAL TUMOUR
     Dosage: 400 MG, QD
     Route: 048
     Dates: start: 20130904

REACTIONS (5)
  - Pancreatic leak [Recovered/Resolved with Sequelae]
  - Abdominal abscess [Recovered/Resolved with Sequelae]
  - Klebsiella infection [Recovered/Resolved with Sequelae]
  - Enterococcal infection [Recovered/Resolved with Sequelae]
  - Fungal infection [Recovered/Resolved with Sequelae]
